FAERS Safety Report 5385773-6 (Version None)
Quarter: 2007Q3

REPORT INFORMATION
  Report Type: 
  Country: None (occurrence: None)
  Receive Date: 20070712
  Receipt Date: 20070625
  Transmission Date: 20080115
  Serious: Yes (Life-Threatening, Hospitalization, Disabling)
  Sender: FDA-Public Use
  Company Number: US-ASTRAZENECA-2006UW02750

PATIENT
  Age: 8 Year
  Sex: Male
  Weight: 27.3 kg

DRUGS (7)
  1. SEROQUEL [Suspect]
     Indication: BIPOLAR DISORDER
     Route: 048
     Dates: start: 20030701, end: 20031001
  2. SEROQUEL [Suspect]
     Route: 048
     Dates: start: 20031001, end: 20031201
  3. SEROQUEL [Suspect]
     Route: 048
     Dates: start: 20031201, end: 20040115
  4. IMIPRAMINE [Concomitant]
     Indication: ATTENTION DEFICIT/HYPERACTIVITY DISORDER
     Route: 048
     Dates: start: 20000828, end: 20040215
  5. DEPAKOTE [Concomitant]
     Indication: BIPOLAR DISORDER
  6. ZYPREXA [Concomitant]
     Indication: BIPOLAR DISORDER
     Dates: start: 20030701, end: 20031001
  7. GEODON [Concomitant]
     Indication: BIPOLAR DISORDER
     Dates: start: 20040130, end: 20041022

REACTIONS (3)
  - PANCREATIC INSUFFICIENCY [None]
  - PANCREATITIS [None]
  - TYPE 1 DIABETES MELLITUS [None]
